FAERS Safety Report 9258170 (Version 1)
Quarter: 2013Q2

REPORT INFORMATION
  Report Type: Report from Study
  Country: US (occurrence: US)
  Receive Date: 20130426
  Receipt Date: 20130426
  Transmission Date: 20140414
  Serious: Yes (Life-Threatening, Other)
  Sender: FDA-Public Use
  Company Number: US-ROCHE-1214521

PATIENT
  Sex: 0

DRUGS (1)
  1. BEVACIZUMAB [Suspect]
     Indication: MENINGIOMA
     Route: 042

REACTIONS (6)
  - Medical device complication [Unknown]
  - Impaired healing [Unknown]
  - Hypertension [Unknown]
  - Hepatic enzyme increased [Unknown]
  - Menorrhagia [Unknown]
  - Menstruation irregular [Unknown]
